FAERS Safety Report 16824771 (Version 3)
Quarter: 2019Q4

REPORT INFORMATION
  Report Type: Report from Study
  Country: AU (occurrence: AU)
  Receive Date: 20190918
  Receipt Date: 20191216
  Transmission Date: 20200122
  Serious: Yes (Death)
  Sender: FDA-Public Use
  Company Number: AU-EXELIXIS-XL18419023753

PATIENT
  Age: 64 Year
  Sex: Female

DRUGS (20)
  1. LYRICA [Concomitant]
     Active Substance: PREGABALIN
     Indication: SPINAL FUSION SURGERY
     Dosage: 300 MG, QD
     Dates: start: 2016
  2. RABEPRAZOLE [Concomitant]
     Active Substance: RABEPRAZOLE
     Indication: NAUSEA
     Dosage: 10 MG, QD
     Dates: start: 2018, end: 20190823
  3. CABOZANTINIB [Suspect]
     Active Substance: CABOZANTINIB
     Indication: RENAL CELL CARCINOMA
     Dosage: 60 MG, QD
     Route: 048
     Dates: start: 20190823, end: 20190905
  4. CB-839 [Suspect]
     Active Substance: TELAGLENASTAT
     Indication: RENAL CELL CARCINOMA
     Dosage: 800 MG, BID
     Route: 048
     Dates: start: 20190823, end: 20190905
  5. ZOFRAN ZYDIS WAFER [Concomitant]
     Indication: NAUSEA
     Dosage: 4 MG
     Dates: start: 2018
  6. OXYNORM [Concomitant]
     Active Substance: OXYCODONE HYDROCHLORIDE
     Indication: PLEURITIC PAIN
     Dosage: 20 MG
     Dates: start: 2018
  7. VENTOLIN [Concomitant]
     Active Substance: ALBUTEROL SULFATE
     Indication: ASTHMA
     Dosage: 4 {DF}
     Dates: start: 2013
  8. OSMOLAX [Concomitant]
     Indication: CONSTIPATION
     Dosage: UNK
     Dates: start: 2018
  9. AMITRIPTYLINE [Concomitant]
     Active Substance: AMITRIPTYLINE
     Indication: DEPRESSION
     Dosage: 10 MG, QD
     Dates: start: 2018
  10. SYMBICORT [Concomitant]
     Active Substance: BUDESONIDE\FORMOTEROL FUMARATE DIHYDRATE
     Indication: ASTHMA
     Dosage: 2 {DF}, BID
     Dates: start: 2013
  11. PREDNISOLONE. [Concomitant]
     Active Substance: PREDNISOLONE
     Indication: ASTHMA
     Dosage: 25 MG
     Dates: start: 2013
  12. EDONE [Concomitant]
     Indication: SPINAL FUSION SURGERY
     Dosage: 5 MG
     Dates: start: 2016
  13. COLOXYL WITH SENNA [Concomitant]
     Active Substance: DOCUSATE SODIUM\SENNOSIDES A AND B
     Indication: CONSTIPATION
     Dosage: UNK
     Dates: start: 2016
  14. OXYCODONE HYDROCHLORIDE MR [Concomitant]
     Indication: PLEURITIC PAIN
     Dosage: 10 MG, BID
     Dates: start: 2018
  15. OXYCODONE HYDROCHLORIDE MR [Concomitant]
     Dosage: 40 MG, BID
     Dates: start: 2019
  16. METOCLOPRAMIDE. [Concomitant]
     Active Substance: METOCLOPRAMIDE
     Indication: NAUSEA
     Dosage: 10 MG
     Dates: start: 2018
  17. LYRICA [Concomitant]
     Active Substance: PREGABALIN
     Dosage: 150 MG, QD
     Dates: start: 2016
  18. LASIX [Concomitant]
     Active Substance: FUROSEMIDE
     Indication: OEDEMA PERIPHERAL
     Dosage: 20 MG, QD
     Dates: start: 2018
  19. PROCHLORPERAZINE. [Concomitant]
     Active Substance: PROCHLORPERAZINE
     Indication: NAUSEA
     Dosage: 5 MG
     Dates: start: 2019
  20. TEMAZEPAM. [Concomitant]
     Active Substance: TEMAZEPAM
     Indication: INSOMNIA
     Dosage: 10 MG
     Dates: start: 201810

REACTIONS (1)
  - Respiratory failure [Fatal]

NARRATIVE: CASE EVENT DATE: 20190907
